FAERS Safety Report 5712279-4 (Version None)
Quarter: 2008Q2

REPORT INFORMATION
  Report Type: 
  Country: None (occurrence: None)
  Receive Date: 20080417
  Receipt Date: 20080404
  Transmission Date: 20081010
  Serious: Yes (Hospitalization)
  Sender: FDA-Public Use
  Company Number: CIO08005850

PATIENT
  Age: 40 Year
  Sex: Male
  Weight: 79.4 kg

DRUGS (6)
  1. NYQUIL COLD/FLU, ALCOHOL 10% PSEUDOEPHEDRINE FREE, ORIGINAL FLAVOR(PAR [Suspect]
     Indication: NASOPHARYNGITIS
     Dosage: 60 ML, 1/DAY, ORAL
     Route: 048
     Dates: start: 20080203, end: 20080203
  2. DAYQUIL, FORM/VERSION/FLAVOR UNKNOWN(BROMPHENIRAMINE MALEATE UNKNOWN U [Suspect]
     Indication: NASOPHARYNGITIS
     Dosage: ORAL
     Route: 048
  3. Z-PAK(AZITHROMYCIN) [Suspect]
     Dosage: ORAL
     Route: 048
  4. ALKA SELTZER PLUS COLD(PHENYLPROPANOLAMINE HYDROCHLORIDE, CHLORPHENAMI [Suspect]
     Dosage: ORAL
     Route: 048
  5. ALKA-SELTZER PLUS COLD + FLU MEDICINE(PHENYLPROPANOLAMINE BITARTRATE, [Suspect]
     Dosage: ORAL
     Route: 048
  6. ROBITUSSIN DM /00288801/GUAIFENESIN, ETHANOL, DEXTROMETHORPHAN HYDROBR [Suspect]
     Dosage: ORAL
     Route: 048

REACTIONS (9)
  - CONVULSION [None]
  - DRUG ADMINISTRATION ERROR [None]
  - EYE ROLLING [None]
  - HYPERHIDROSIS [None]
  - INCORRECT DOSE ADMINISTERED [None]
  - MUSCULOSKELETAL STIFFNESS [None]
  - SNORING [None]
  - TONGUE HAEMORRHAGE [None]
  - TONGUE INJURY [None]
